FAERS Safety Report 19116835 (Version 1)
Quarter: 2021Q2

REPORT INFORMATION
  Report Type: Spontaneous
  Country: BR (occurrence: BR)
  Receive Date: 20210409
  Receipt Date: 20210409
  Transmission Date: 20210717
  Serious: Yes (Other)
  Sender: FDA-Public Use
  Company Number: BR-BAYER-2021-110685

PATIENT
  Age: 52 Year
  Sex: Female

DRUGS (4)
  1. MIRENA [Suspect]
     Active Substance: LEVONORGESTREL
     Indication: HEAVY MENSTRUAL BLEEDING
     Dosage: 20 ?G PER DAY, CONTINUOUSLY
     Route: 015
     Dates: start: 20201202
  2. QLAIRA [Suspect]
     Active Substance: DIENOGEST\ESTRADIOL VALERATE
     Indication: VAGINAL HAEMORRHAGE
     Dosage: UNK
     Route: 048
  3. MIRENA [Suspect]
     Active Substance: LEVONORGESTREL
     Indication: ENDOMETRIOSIS
     Dosage: 20 ?G PER DAY, CONTINUOUSLY
     Route: 015
  4. AMLODIPINE [Concomitant]
     Active Substance: AMLODIPINE BESYLATE
     Indication: HYPERTENSION
     Dosage: 1 DF, QD
     Route: 048

REACTIONS (11)
  - Amenorrhoea [Recovered/Resolved]
  - Inappropriate schedule of product administration [None]
  - Device use issue [None]
  - Off label use [None]
  - Abdominal pain lower [Not Recovered/Not Resolved]
  - Device expulsion [None]
  - Blood loss anaemia [Recovering/Resolving]
  - Genital haemorrhage [Recovered/Resolved]
  - Product use in unapproved indication [None]
  - Device dislocation [Recovered/Resolved]
  - Vaginal haemorrhage [Recovered/Resolved]

NARRATIVE: CASE EVENT DATE: 202012
